FAERS Safety Report 9587364 (Version 1)
Quarter: 2013Q4

REPORT INFORMATION
  Report Type: Spontaneous
  Country: US (occurrence: None)
  Receive Date: 20131003
  Receipt Date: 20131003
  Transmission Date: 20140711
  Serious: No
  Sender: FDA-Public Use
  Company Number: None

PATIENT
  Age: 30 Year
  Sex: Female
  Weight: 49.9 kg

DRUGS (1)
  1. COLGATE OPTIC WHITE TOOTHPASTE [Suspect]
     Indication: DENTAL CARE
     Dates: start: 20130924, end: 20131002

REACTIONS (7)
  - Oral pain [None]
  - Lip dry [None]
  - Chapped lips [None]
  - Glossodynia [None]
  - Palatal disorder [None]
  - Burning sensation [None]
  - Gingival pain [None]
